FAERS Safety Report 9930448 (Version 1)
Quarter: 2014Q1

REPORT INFORMATION
  Report Type: Spontaneous
  Country: US (occurrence: US)
  Receive Date: 20140227
  Receipt Date: 20140227
  Transmission Date: 20141002
  Serious: No
  Sender: FDA-Public Use
  Company Number: US-AMGEN-USASP2013085672

PATIENT
  Age: 31 Year
  Sex: Female

DRUGS (4)
  1. ENBREL [Suspect]
     Indication: RHEUMATOID ARTHRITIS
     Dosage: 50 MG, QWK
     Route: 058
     Dates: start: 201309
  2. LO/OVRAL                           /00022701/ [Concomitant]
     Dosage: UNK
  3. NUVIGIL [Concomitant]
     Dosage: UNK
  4. MOBIC [Concomitant]
     Dosage: UNK

REACTIONS (2)
  - Headache [Unknown]
  - Dyspepsia [Unknown]
